FAERS Safety Report 23887665 (Version 1)
Quarter: 2024Q2

REPORT INFORMATION
  Report Type: Spontaneous
  Country: IT (occurrence: IT)
  Receive Date: 20240523
  Receipt Date: 20240523
  Transmission Date: 20240716
  Serious: Yes (Other)
  Sender: FDA-Public Use
  Company Number: IT-MINISAL02-984414

PATIENT
  Age: 62 Year
  Sex: Male

DRUGS (1)
  1. PEMETREXED [Suspect]
     Active Substance: PEMETREXED
     Indication: Lung adenocarcinoma
     Dosage: 800 MILLIGRAM
     Route: 042
     Dates: start: 20240105, end: 20240105

REACTIONS (4)
  - Blood creatine increased [Recovered/Resolved]
  - Hypertransaminasaemia [Recovered/Resolved]
  - Hypercreatininaemia [Recovered/Resolved]
  - Conjunctivitis [Recovered/Resolved]

NARRATIVE: CASE EVENT DATE: 20240126
